FAERS Safety Report 21374901 (Version 2)
Quarter: 2022Q3

REPORT INFORMATION
  Report Type: Spontaneous
  Country: US (occurrence: US)
  Receive Date: 20220926
  Receipt Date: 20220929
  Transmission Date: 20221027
  Serious: Yes (Other)
  Sender: FDA-Public Use
  Company Number: US-TEVA-2022-US-2075563

PATIENT
  Age: 70 Year
  Sex: Female

DRUGS (2)
  1. CLONAZEPAM [Suspect]
     Active Substance: CLONAZEPAM
     Indication: Anxiety
     Dosage: 1.5 MILLIGRAM DAILY; 1.5MG SPLIT INTO 2 DOSES DAILY
     Route: 065
  2. CLONAZEPAM [Suspect]
     Active Substance: CLONAZEPAM
     Dosage: 4 MILLIGRAM
     Route: 065
     Dates: start: 2007

REACTIONS (11)
  - Dementia Alzheimer^s type [Unknown]
  - Cataract [Unknown]
  - Chronic kidney disease [Unknown]
  - Panic reaction [Unknown]
  - Feeling of despair [Unknown]
  - Insomnia [Unknown]
  - Cardiac valve disease [Unknown]
  - Intervertebral disc degeneration [Unknown]
  - Fear of death [Unknown]
  - Fear of disease [Unknown]
  - Wrong technique in product usage process [Unknown]

NARRATIVE: CASE EVENT DATE: 20220101
